FAERS Safety Report 24615975 (Version 1)
Quarter: 2024Q4

REPORT INFORMATION
  Report Type: Spontaneous
  Country: US (occurrence: US)
  Receive Date: 20241113
  Receipt Date: 20241113
  Transmission Date: 20250115
  Serious: No
  Sender: JOHNSON AND JOHNSON
  Company Number: US-JNJFOC-20241115050

PATIENT
  Age: 19 Year
  Sex: Male

DRUGS (1)
  1. STELARA [Suspect]
     Active Substance: USTEKINUMAB
     Indication: Product used for unknown indication
     Dosage: RECEIVED INITIAL DOSE ON 31-OCT-2024 OR 1-NOV-2024
     Route: 040

REACTIONS (2)
  - Erythema [Unknown]
  - Dyspnoea [Unknown]
